FAERS Safety Report 8364161-4 (Version None)
Quarter: 2012Q2

REPORT INFORMATION
  Report Type: 
  Country: None (occurrence: None)
  Receive Date: 20120516
  Receipt Date: 20120507
  Transmission Date: 20120825
  Serious: Yes (Disabling)
  Sender: FDA-Public Use
  Company Number: JP-JNJFOC-20120509976

PATIENT
  Sex: Female
  Weight: 39 kg

DRUGS (6)
  1. GALANTAMINE HYDROBROMIDE [Suspect]
     Indication: DEMENTIA ALZHEIMER'S TYPE
     Route: 048
     Dates: start: 20110824, end: 20110920
  2. DONEPEZIL HCL [Concomitant]
     Indication: PRODUCT USED FOR UNKNOWN INDICATION
     Route: 065
     Dates: start: 20110620
  3. ASPIRIN [Concomitant]
     Indication: BACK PAIN
     Route: 048
  4. GALANTAMINE HYDROBROMIDE [Suspect]
     Route: 048
     Dates: start: 20110921, end: 20111011
  5. NORVASC [Concomitant]
     Indication: HYPERTENSION
     Route: 048
  6. CRESTOR [Concomitant]
     Indication: HYPERTENSION
     Route: 048

REACTIONS (1)
  - DECREASED APPETITE [None]
